FAERS Safety Report 6413558-8 (Version None)
Quarter: 2009Q4

REPORT INFORMATION
  Report Type: 
  Country: None (occurrence: None)
  Receive Date: 20091026
  Receipt Date: 20091022
  Transmission Date: 20100525
  Serious: Yes (Death, Other)
  Sender: FDA-Public Use
  Company Number: PHHY2008ZA33835

PATIENT
  Sex: Female

DRUGS (6)
  1. GLEEVEC [Suspect]
     Dosage: 400 MG
     Dates: start: 20020322, end: 20031231
  2. GLEEVEC [Suspect]
     Dosage: 600 MG DAILY
  3. GLEEVEC [Suspect]
     Dosage: 800 MG DAILY
  4. HYDROXYUREA [Concomitant]
     Dosage: 1.5 MG DAILY
  5. BUSULPHAN [Concomitant]
     Dosage: UNK
  6. INTERFERON [Concomitant]

REACTIONS (9)
  - ANAEMIA [None]
  - CHRONIC MYELOID LEUKAEMIA [None]
  - DEATH [None]
  - DISEASE PROGRESSION [None]
  - DRUG RESISTANCE [None]
  - HEADACHE [None]
  - MALAISE [None]
  - MALIGNANT NEOPLASM PROGRESSION [None]
  - TREATMENT NONCOMPLIANCE [None]
